FAERS Safety Report 6769321-1 (Version None)
Quarter: 2010Q2

REPORT INFORMATION
  Report Type: 
  Country: None (occurrence: None)
  Receive Date: 20100520
  Receipt Date: 20090724
  Transmission Date: 20101027
  Serious: Yes (Other)
  Sender: FDA-Public Use
  Company Number: 2007098431

PATIENT
  Age: 61 Year
  Sex: Female

DRUGS (5)
  1. PROVERA [Suspect]
     Indication: HORMONE REPLACEMENT THERAPY
     Dosage: 5 MG, ORAL
     Route: 048
     Dates: start: 19871001, end: 19990601
  2. MEDROXYPROGESTERONE ACETATE [Suspect]
     Indication: HORMONE REPLACEMENT THERAPY
     Dosage: ORAL
     Route: 048
     Dates: start: 19940101
  3. PREMARIN [Suspect]
     Indication: HORMONE REPLACEMENT THERAPY
     Dosage: 0.625 MG
     Dates: start: 19871001, end: 19990601
  4. PREMPRO [Suspect]
     Indication: HORMONE REPLACEMENT THERAPY
     Dosage: 0.625/5 MG
     Dates: start: 19990601, end: 20010501
  5. PAXIL [Concomitant]

REACTIONS (2)
  - PULMONARY EMBOLISM [None]
  - THROMBOSIS [None]
